FAERS Safety Report 25362364 (Version 1)
Quarter: 2025Q2

REPORT INFORMATION
  Report Type: Spontaneous
  Country: US (occurrence: None)
  Receive Date: 20250524
  Receipt Date: 20250524
  Transmission Date: 20250717
  Serious: Yes (Disabling)
  Sender: FDA-CTU
  Company Number: None

PATIENT
  Age: 16 Year
  Sex: Male
  Weight: 76.5 kg

DRUGS (2)
  1. OGSIVEO [Suspect]
     Active Substance: NIROGACESTAT HYDROBROMIDE
     Indication: Desmoid tumour
     Dosage: 1 CAPSULE(S) TWICE A DAY ORAL
     Route: 048
  2. Vitatmin D [Concomitant]

REACTIONS (5)
  - Upper limb fracture [None]
  - Wrist fracture [None]
  - Scoliosis [None]
  - Developmental hip dysplasia [None]
  - Bone density abnormal [None]

NARRATIVE: CASE EVENT DATE: 20250108
